FAERS Safety Report 13962890 (Version 5)
Quarter: 2017Q4

REPORT INFORMATION
  Report Type: Spontaneous
  Country: DE (occurrence: DE)
  Receive Date: 20170913
  Receipt Date: 20171106
  Transmission Date: 20180320
  Serious: Yes (Hospitalization)
  Sender: FDA-Public Use
  Company Number: DE-B.I. PHARMACEUTICALS,INC./RIDGEFIELD-2017-BI-049592

PATIENT
  Age: 67 Year
  Sex: Male
  Weight: 82 kg

DRUGS (9)
  1. BISOPROLOL 1A PHARMA [Concomitant]
     Active Substance: BISOPROLOL
     Indication: ATRIAL FIBRILLATION
     Dosage: 1.5 DOSAGE FORMS
     Route: 065
     Dates: start: 2008
  2. NEXIUM [Concomitant]
     Active Substance: ESOMEPRAZOLE MAGNESIUM
     Indication: PRODUCT USED FOR UNKNOWN INDICATION
     Route: 065
  3. CLOPIDOGREL ALMUS /01220701/ [Suspect]
     Active Substance: CLOPIDOGREL BISULFATE
     Indication: STENT PLACEMENT
     Route: 065
     Dates: start: 201704, end: 20171011
  4. PRADAXA [Suspect]
     Active Substance: DABIGATRAN ETEXILATE MESYLATE
     Route: 065
     Dates: start: 20171011
  5. SIMVASTATIN. [Concomitant]
     Active Substance: SIMVASTATIN
     Route: 065
     Dates: start: 2012
  6. PRADAXA [Suspect]
     Active Substance: DABIGATRAN ETEXILATE MESYLATE
     Route: 065
     Dates: start: 2017, end: 20171011
  7. SIMVASTATIN. [Concomitant]
     Active Substance: SIMVASTATIN
     Indication: ATRIAL FIBRILLATION
     Route: 065
     Dates: start: 2008
  8. PRADAXA [Suspect]
     Active Substance: DABIGATRAN ETEXILATE MESYLATE
     Indication: ATRIAL FIBRILLATION
     Route: 065
     Dates: start: 2008
  9. PRADAXA [Suspect]
     Active Substance: DABIGATRAN ETEXILATE MESYLATE
     Route: 065
     Dates: start: 2012

REACTIONS (4)
  - Conjunctival haemorrhage [Unknown]
  - Angina unstable [Unknown]
  - Embolic cerebral infarction [Recovered/Resolved]
  - Arrhythmia [Unknown]

NARRATIVE: CASE EVENT DATE: 201208
